FAERS Safety Report 8572981-6 (Version None)
Quarter: 2012Q3

REPORT INFORMATION
  Report Type: 
  Country: None (occurrence: None)
  Receive Date: 20120806
  Receipt Date: 20120726
  Transmission Date: 20120928
  Serious: Yes (Other)
  Sender: FDA-Public Use
  Company Number: FR-ASTRAZENECA-2012SE53640

PATIENT
  Age: 18756 Day
  Sex: Female

DRUGS (8)
  1. ACETAMINOPHEN [Concomitant]
  2. REMIFENTANIL MYLAN [Concomitant]
  3. PROPOFOL [Suspect]
     Indication: ANAESTHESIA
     Route: 042
     Dates: start: 20120709, end: 20120709
  4. CEFAZOLIN [Suspect]
     Indication: ANTIBIOTIC PROPHYLAXIS
     Route: 042
     Dates: start: 20120709, end: 20120709
  5. SUPRANE [Concomitant]
  6. GAVISCON [Concomitant]
  7. KETAMINE HCL [Suspect]
     Indication: ANAESTHESIA
     Route: 042
     Dates: start: 20120709, end: 20120709
  8. LIDOCAINE [Suspect]
     Indication: INTRAOPERATIVE CARE
     Route: 042
     Dates: start: 20120709, end: 20120709

REACTIONS (3)
  - VOMITING [None]
  - INCORRECT DRUG ADMINISTRATION RATE [None]
  - ACCIDENTAL OVERDOSE [None]
